FAERS Safety Report 19382531 (Version 1)
Quarter: 2021Q2

REPORT INFORMATION
  Report Type: Report from Study
  Country: US (occurrence: US)
  Receive Date: 20210607
  Receipt Date: 20210607
  Transmission Date: 20210717
  Serious: Yes (Hospitalization, Other)
  Sender: FDA-Public Use
  Company Number: US-TAKEDA-2021TUS034362

PATIENT
  Age: 24 Year
  Sex: Male

DRUGS (16)
  1. TEDUGLUTIDE [Suspect]
     Active Substance: TEDUGLUTIDE
     Indication: PRODUCT USED FOR UNKNOWN INDICATION
     Dosage: 2.6 MILLIGRAM, 7 DOSES PER WEEK
     Route: 065
     Dates: start: 201811, end: 20201124
  2. VIBRAMYCIN [Concomitant]
     Active Substance: DOXYCYCLINE
     Indication: EPIDIDYMITIS
     Dosage: 1 CAP, BID
     Route: 048
     Dates: start: 20210305, end: 20210312
  3. TEDUGLUTIDE [Suspect]
     Active Substance: TEDUGLUTIDE
     Dosage: 2.9 MILLIGRAM, 7 DOSES PER WEEK
     Route: 065
     Dates: start: 20201125, end: 20210312
  4. TEDUGLUTIDE [Suspect]
     Active Substance: TEDUGLUTIDE
     Dosage: 2.9 MILLIGRAM, 7 DOSES PER WEEK
     Route: 065
     Dates: start: 20210317
  5. TEDUGLUTIDE [Suspect]
     Active Substance: TEDUGLUTIDE
     Dosage: 2.9 MILLIGRAM, 7 DOSES PER WEEK
     Route: 065
     Dates: start: 20210317
  6. BACTRIM DS [Concomitant]
     Active Substance: SULFAMETHOXAZOLE\TRIMETHOPRIM
     Indication: EPIDIDYMITIS
     Dosage: 1 TAB, BID
     Route: 048
     Dates: start: 20210318, end: 20210324
  7. TEDUGLUTIDE [Suspect]
     Active Substance: TEDUGLUTIDE
     Indication: PRODUCT USED FOR UNKNOWN INDICATION
     Dosage: 2.6 MILLIGRAM, 7 DOSES PER WEEK
     Route: 065
     Dates: start: 201811, end: 20201124
  8. TEDUGLUTIDE [Suspect]
     Active Substance: TEDUGLUTIDE
     Dosage: 2.9 MILLIGRAM, 7 DOSES PER WEEK
     Route: 065
     Dates: start: 20201125, end: 20210312
  9. CEFTRIAXONE SODIUM. [Concomitant]
     Active Substance: CEFTRIAXONE SODIUM
     Indication: EPIDIDYMITIS
     Dosage: 500 MILLIGRAM
     Route: 030
     Dates: start: 20210305, end: 20210305
  10. TEDUGLUTIDE [Suspect]
     Active Substance: TEDUGLUTIDE
     Indication: PRODUCT USED FOR UNKNOWN INDICATION
     Dosage: 2.6 MILLIGRAM, 7 DOSES PER WEEK
     Route: 065
     Dates: start: 201811, end: 20201124
  11. TEDUGLUTIDE [Suspect]
     Active Substance: TEDUGLUTIDE
     Indication: PRODUCT USED FOR UNKNOWN INDICATION
     Dosage: 2.6 MILLIGRAM, 7 DOSES PER WEEK
     Route: 065
     Dates: start: 201811, end: 20201124
  12. TEDUGLUTIDE [Suspect]
     Active Substance: TEDUGLUTIDE
     Dosage: 2.9 MILLIGRAM, 7 DOSES PER WEEK
     Route: 065
     Dates: start: 20201125, end: 20210312
  13. SODIUM CHLORIDE. [Concomitant]
     Active Substance: SODIUM CHLORIDE
     Indication: MALNUTRITION
     Dosage: 1000 MILLILITER, 2/WEEK
     Route: 042
     Dates: start: 20190920
  14. TEDUGLUTIDE [Suspect]
     Active Substance: TEDUGLUTIDE
     Dosage: 2.9 MILLIGRAM, 7 DOSES PER WEEK
     Route: 065
     Dates: start: 20201125, end: 20210312
  15. TEDUGLUTIDE [Suspect]
     Active Substance: TEDUGLUTIDE
     Dosage: 2.9 MILLIGRAM, 7 DOSES PER WEEK
     Route: 065
     Dates: start: 20210317
  16. TEDUGLUTIDE [Suspect]
     Active Substance: TEDUGLUTIDE
     Dosage: 2.9 MILLIGRAM, 7 DOSES PER WEEK
     Route: 065
     Dates: start: 20210317

REACTIONS (6)
  - Sepsis [Recovered/Resolved]
  - Troponin increased [Unknown]
  - Syncope [Recovered/Resolved]
  - Epididymitis [Recovered/Resolved]
  - Weight decreased [Not Recovered/Not Resolved]
  - Acute kidney injury [Recovered/Resolved]

NARRATIVE: CASE EVENT DATE: 2021
